FAERS Safety Report 6843378-1 (Version None)
Quarter: 2010Q3

REPORT INFORMATION
  Report Type: 
  Country: None (occurrence: None)
  Receive Date: 20100715
  Receipt Date: 20100701
  Transmission Date: 20110219
  Serious: Yes (Other)
  Sender: FDA-Public Use
  Company Number: PL-RANBAXY-2010RR-35717

PATIENT
  Sex: Male

DRUGS (1)
  1. PRAVATOR [Suspect]
     Dosage: 20 MG, SINGLE
     Route: 048
     Dates: start: 20100611, end: 20100611

REACTIONS (6)
  - DYSPNOEA [None]
  - EYELID OEDEMA [None]
  - LIP SWELLING [None]
  - SWELLING FACE [None]
  - SWOLLEN TONGUE [None]
  - URTICARIA [None]
